FAERS Safety Report 18449608 (Version 3)
Quarter: 2025Q3

REPORT INFORMATION
  Report Type: Spontaneous
  Country: US (occurrence: US)
  Receive Date: 20201031
  Receipt Date: 20250731
  Transmission Date: 20251020
  Serious: Yes (Disabling, Other)
  Sender: PURDUE
  Company Number: US-PURDUE PHARMA-USA-2020-0152932

PATIENT
  Sex: Male

DRUGS (12)
  1. OXYCONTIN [Suspect]
     Active Substance: OXYCODONE HYDROCHLORIDE
     Indication: Procedural pain
     Route: 048
  2. OXYCODONE HYDROCHLORIDE [Suspect]
     Active Substance: OXYCODONE HYDROCHLORIDE
     Indication: Procedural pain
     Route: 048
  3. OXYCODONE HYDROCHLORIDE [Suspect]
     Active Substance: OXYCODONE HYDROCHLORIDE
     Indication: Procedural pain
     Route: 048
  4. ACETAMINOPHEN\OXYCODONE HYDROCHLORIDE [Suspect]
     Active Substance: ACETAMINOPHEN\OXYCODONE HYDROCHLORIDE
     Indication: Procedural pain
     Route: 048
  5. DILAUDID [Suspect]
     Active Substance: HYDROMORPHONE HYDROCHLORIDE
     Indication: Procedural pain
     Route: 048
  6. HYDROCODONE BITARTRATE [Suspect]
     Active Substance: HYDROCODONE BITARTRATE
     Indication: Procedural pain
     Route: 065
  7. HYDROCODONE BITARTRATE AND ACETAMINOPHEN [Suspect]
     Active Substance: ACETAMINOPHEN\HYDROCODONE BITARTRATE
     Indication: Procedural pain
     Route: 048
  8. DEXTROAMPHETAMINE SACCHARATE, AMPHETAMINE ASPARTATE, DEXTROAMPHETAMINE [Suspect]
     Active Substance: AMPHETAMINE ASPARTATE\AMPHETAMINE SULFATE\DEXTROAMPHETAMINE SACCHARATE\DEXTROAMPHETAMINE SULFATE
     Indication: Procedural pain
     Route: 048
  9. TRAMADOL [Suspect]
     Active Substance: TRAMADOL
     Indication: Procedural pain
     Route: 048
  10. ALCOHOL [Suspect]
     Active Substance: ALCOHOL
     Indication: Product used for unknown indication
     Route: 065
  11. LORATADINE [Suspect]
     Active Substance: LORATADINE
     Indication: Product used for unknown indication
     Route: 065
  12. CANNABIS SATIVA SUBSP. INDICA TOP [Suspect]
     Active Substance: CANNABIS SATIVA SUBSP. INDICA TOP
     Indication: Product used for unknown indication
     Route: 065

REACTIONS (25)
  - Psychotic disorder [Unknown]
  - Self-destructive behaviour [Unknown]
  - Impaired driving ability [Unknown]
  - Road traffic accident [Unknown]
  - Dementia [Unknown]
  - Hallucination [Unknown]
  - Deafness [Unknown]
  - Toxicity to various agents [Unknown]
  - Drug dependence [Unknown]
  - Drug abuse [Unknown]
  - Alcohol abuse [Unknown]
  - Impaired quality of life [Unknown]
  - Amnesia [Unknown]
  - Depression [Unknown]
  - Mental disorder [Unknown]
  - Hypertension [Unknown]
  - Sleep disorder [Unknown]
  - Disorientation [Unknown]
  - Drug withdrawal syndrome [Unknown]
  - Delusion [Unknown]
  - Aggression [Unknown]
  - Disturbance in attention [Unknown]
  - Drug screen positive [Unknown]
  - Cognitive disorder [Unknown]
  - Pain [Unknown]

NARRATIVE: CASE EVENT DATE: 20120101
